FAERS Safety Report 4325400-X (Version None)
Quarter: 2004Q1

REPORT INFORMATION
  Report Type: 
  Country: None (occurrence: None)
  Receive Date: 20040324
  Receipt Date: 20040316
  Transmission Date: 20041129
  Serious: No
  Sender: FDA-Public Use
  Company Number: 2003UW15490

PATIENT
  Age: 42 Year
  Sex: Female
  Weight: 58.0604 kg

DRUGS (10)
  1. XYLOCAINE [Suspect]
     Indication: LOCAL ANAESTHESIA
     Dosage: 20 ML ONCE SQ
     Route: 058
     Dates: start: 20031022, end: 20031022
  2. PROPOFOL [Concomitant]
  3. KEFZOL [Concomitant]
  4. TORADOL [Concomitant]
  5. ZOFRAN [Concomitant]
  6. MULTI-VITAMIN [Concomitant]
  7. VITAMIN E [Concomitant]
  8. SELENIUM TRACE METAL ADDITIVE [Concomitant]
  9. GINKO [Concomitant]
  10. CALCIUM [Concomitant]

REACTIONS (1)
  - HYPERTENSION [None]
